FAERS Safety Report 15101526 (Version 2)
Quarter: 2018Q4

REPORT INFORMATION
  Report Type: Spontaneous
  Country: US (occurrence: US)
  Receive Date: 20180703
  Receipt Date: 20181009
  Transmission Date: 20190204
  Serious: Yes (Hospitalization, Other)
  Sender: FDA-Public Use
  Company Number: US-GLAXOSMITHKLINE-US2018113311

PATIENT
  Age: 88 Year
  Sex: Female
  Weight: 64.4 kg

DRUGS (7)
  1. ADVAIR DISKUS [Suspect]
     Active Substance: FLUTICASONE PROPIONATE\SALMETEROL XINAFOATE
     Dosage: 1 PUFF(S), QD
  2. PANTOPRAZOLE [Concomitant]
     Active Substance: PANTOPRAZOLE
     Dosage: UNK UNK, BID
  3. MONTELUKAST [Concomitant]
     Active Substance: MONTELUKAST SODIUM
  4. RAMIPRIL. [Concomitant]
     Active Substance: RAMIPRIL
  5. SUCRALFATE. [Concomitant]
     Active Substance: SUCRALFATE
     Dosage: UNK UNK, BID
  6. LOW DOSE ASPIRIN [Concomitant]
     Active Substance: ASPIRIN
  7. ADVAIR DISKUS [Suspect]
     Active Substance: FLUTICASONE PROPIONATE\SALMETEROL XINAFOATE
     Indication: ASTHMA
     Dosage: 1 PUFF(S), BID

REACTIONS (13)
  - Haemoptysis [Unknown]
  - Cardiac operation [Unknown]
  - Gastrooesophageal reflux disease [Unknown]
  - Oesophagitis [Not Recovered/Not Resolved]
  - Oropharyngeal pain [Unknown]
  - Oesophageal haemorrhage [Unknown]
  - Foreign body in respiratory tract [Unknown]
  - Medical diet [Unknown]
  - Oesophageal ulcer [Not Recovered/Not Resolved]
  - Prescribed underdose [Unknown]
  - Oesophageal pain [Unknown]
  - Aortic valve replacement [Unknown]
  - Pharyngeal haemorrhage [Unknown]

NARRATIVE: CASE EVENT DATE: 2011
